FAERS Safety Report 8541828-6 (Version None)
Quarter: 2012Q3

REPORT INFORMATION
  Report Type: 
  Country: None (occurrence: None)
  Receive Date: 20120726
  Receipt Date: 20110902
  Transmission Date: 20120928
  Serious: No
  Sender: FDA-Public Use
  Company Number: US-ASTRAZENECA-2011SE53045

PATIENT
  Age: 30 Year
  Sex: Male
  Weight: 73.5 kg

DRUGS (3)
  1. SEROQUEL [Suspect]
     Indication: HALLUCINATION, AUDITORY
     Route: 048
  2. DEPOCODE [Concomitant]
     Indication: BIPOLAR DISORDER
  3. SEROQUEL [Suspect]
     Route: 048

REACTIONS (3)
  - HYPERSOMNIA [None]
  - DRUG DOSE OMISSION [None]
  - MANIA [None]
